FAERS Safety Report 13921411 (Version 1)
Quarter: 2017Q3

REPORT INFORMATION
  Report Type: Spontaneous
  Country: US (occurrence: US)
  Receive Date: 20170830
  Receipt Date: 20170830
  Transmission Date: 20171127
  Serious: No
  Sender: FDA-Public Use
  Company Number: US-ASTRAZENECA-2017SE86583

PATIENT
  Sex: Male
  Weight: 117.9 kg

DRUGS (1)
  1. SEROQUEL XR [Suspect]
     Active Substance: QUETIAPINE FUMARATE
     Indication: BIPOLAR DISORDER
     Dosage: GENERIC
     Route: 048

REACTIONS (3)
  - Off label use [Not Recovered/Not Resolved]
  - Bipolar disorder [Unknown]
  - Anxiety [Unknown]
